FAERS Safety Report 9312754 (Version 4)
Quarter: 2013Q3

REPORT INFORMATION
  Report Type: Spontaneous
  Country: US (occurrence: US)
  Receive Date: 20130528
  Receipt Date: 20130826
  Transmission Date: 20140515
  Serious: Yes (Other)
  Sender: FDA-Public Use
  Company Number: US-PURDUE-USA-2013-0102648

PATIENT
  Age: 45 Year
  Sex: Female
  Weight: 40.36 kg

DRUGS (8)
  1. BUTRANS [Suspect]
     Indication: INTERVERTEBRAL DISC PROTRUSION
     Dosage: 5 MCG/HR, WEEKLY
     Route: 062
     Dates: start: 20130325, end: 201305
  2. BUTRANS [Suspect]
     Indication: NECK PAIN
  3. BUTRANS [Suspect]
     Indication: BACK PAIN
  4. BUTRANS [Suspect]
     Indication: FIBROMYALGIA
  5. MODAFINIL [Concomitant]
     Indication: DISTURBANCE IN ATTENTION
     Dosage: 100 MG, DAILY
     Route: 048
     Dates: start: 201304
  6. LYRICA [Concomitant]
     Indication: NEURALGIA
     Dosage: 200 MG, TID
     Route: 048
     Dates: start: 201302
  7. LYRICA [Concomitant]
     Indication: FIBROMYALGIA
  8. CLONAPINE [Concomitant]
     Indication: ANXIETY
     Dosage: 1 MG, TID
     Route: 048
     Dates: start: 2012

REACTIONS (32)
  - Cerebrovascular accident [Unknown]
  - Muscle injury [Not Recovered/Not Resolved]
  - Brain injury [Not Recovered/Not Resolved]
  - Intracranial aneurysm [Not Recovered/Not Resolved]
  - Drug withdrawal syndrome [Unknown]
  - Muscle atrophy [Not Recovered/Not Resolved]
  - Road traffic accident [Unknown]
  - Aphasia [Unknown]
  - Application site scar [Unknown]
  - Application site discolouration [Not Recovered/Not Resolved]
  - Vein discolouration [Unknown]
  - Activities of daily living impaired [Unknown]
  - Hot flush [Unknown]
  - Pain in extremity [Unknown]
  - Mental impairment [Not Recovered/Not Resolved]
  - Application site pain [Unknown]
  - Malaise [Unknown]
  - Disturbance in attention [Not Recovered/Not Resolved]
  - Insomnia [Unknown]
  - Abnormal loss of weight [Not Recovered/Not Resolved]
  - Abdominal discomfort [Unknown]
  - Constipation [Unknown]
  - Confusional state [Unknown]
  - Depression [Unknown]
  - Headache [Unknown]
  - Speech disorder [Not Recovered/Not Resolved]
  - Hyperhidrosis [Unknown]
  - Asthenia [Unknown]
  - Muscle spasms [Not Recovered/Not Resolved]
  - Feeling jittery [Not Recovered/Not Resolved]
  - Application site erythema [Recovered/Resolved]
  - Dysgeusia [Unknown]
